FAERS Safety Report 6257464-0 (Version None)
Quarter: 2009Q3

REPORT INFORMATION
  Report Type: 
  Country: None (occurrence: None)
  Receive Date: 20090706
  Receipt Date: 20090702
  Transmission Date: 20100115
  Serious: Yes (Hospitalization, Other)
  Sender: FDA-Public Use
  Company Number: JP-B.I. PHARMACEUTICALS,INC./RIDGEFIELD-2009-DE-04122GD

PATIENT
  Sex: Male
  Weight: 62 kg

DRUGS (10)
  1. MICARDIS [Suspect]
     Indication: HYPERTENSION
     Dosage: 40 MG
     Route: 048
     Dates: start: 20070228, end: 20070718
  2. RANITIDINE [Suspect]
     Dosage: 1 ANZ
     Route: 048
     Dates: end: 20080707
  3. TICLOPIDINE HCL [Suspect]
     Indication: MYOCARDIAL INFARCTION
     Dosage: 1 ANZ
     Route: 048
     Dates: end: 20080707
  4. BASEN [Suspect]
     Indication: DIABETES MELLITUS
     Dosage: 3 ANZ
     Route: 048
     Dates: end: 20080718
  5. ASPIRIN [Concomitant]
     Indication: MYOCARDIAL INFARCTION
     Dosage: 1 ANZ
     Route: 048
  6. SIGMART [Concomitant]
     Indication: MYOCARDIAL INFARCTION
     Dosage: 3 ANZ
     Route: 048
     Dates: end: 20080718
  7. CONIEL [Concomitant]
     Indication: HYPERTENSION
     Dosage: 1 ANZ
     Route: 048
     Dates: end: 20080718
  8. NOVORAPID MIX [Concomitant]
     Indication: DIABETES MELLITUS
     Dosage: 42 U
     Route: 058
     Dates: end: 20080718
  9. HIRUBULIN N [Concomitant]
     Indication: BRAIN STEM HAEMORRHAGE
     Dosage: 3 ANZ
     Route: 048
     Dates: end: 20080718
  10. ALANTA SF [Concomitant]
     Indication: BRAIN STEM HAEMORRHAGE
     Dosage: 3 ANZ
     Route: 048
     Dates: end: 20080718

REACTIONS (7)
  - ABDOMINAL PAIN [None]
  - DIARRHOEA [None]
  - PURPURA [None]
  - PYREXIA [None]
  - RENAL FAILURE [None]
  - THROMBOTIC THROMBOCYTOPENIC PURPURA [None]
  - TOXIC SKIN ERUPTION [None]
